FAERS Safety Report 9708510 (Version 1)
Quarter: 2013Q4

REPORT INFORMATION
  Report Type: Spontaneous
  Country: US (occurrence: None)
  Receive Date: 20131121
  Receipt Date: 20131121
  Transmission Date: 20140711
  Serious: Yes (Hospitalization, Other)
  Sender: FDA-Public Use
  Company Number: DEP_01270_2013

PATIENT
  Sex: Female
  Weight: 90.72 kg

DRUGS (2)
  1. GRALISE [Suspect]
     Indication: BACK PAIN
     Dosage: (300 MG TID, STARTER PACK (SAMPLE), IN THE EVENING ORAL)
     Route: 048
     Dates: start: 2013, end: 2013
  2. GRALISE [Suspect]
     Indication: OFF LABEL USE
     Dosage: (300 MG TID, STARTER PACK (SAMPLE), IN THE EVENING ORAL)
     Route: 048
     Dates: start: 2013, end: 2013

REACTIONS (7)
  - Abasia [None]
  - Tremor [None]
  - Hypertension [None]
  - Rash [None]
  - Loss of consciousness [None]
  - Gait disturbance [None]
  - Dysphemia [None]
